FAERS Safety Report 8407141 (Version 2)
Quarter: 2012Q4

REPORT INFORMATION
  Report Type: 
  Country: CA (occurrence: CA)
  Receive Date: 20120215
  Receipt Date: 20121220
  Transmission Date: 20130627
  Serious: Yes (Other)
  Sender: FDA-Public Use
  Company Number: CA-BAYER-2012-014725

PATIENT
  Age: 40 Year
  Sex: Female
  Weight: 18.14 kg

DRUGS (3)
  1. INTERFERON BETA - 1B [Suspect]
     Dosage: 0.250 mg, UNK
     Route: 058
     Dates: start: 20110201, end: 20120827
  2. INTERFERON BETA - 1B [Suspect]
     Dosage: 0.250 mg
     Dates: start: 20121012
  3. VICKS DAYQUIL [PARACETAMOL,PSEUDOEPHEDRINE HYDROCHLORIDE] [Concomitant]

REACTIONS (7)
  - Multiple sclerosis relapse [Not Recovered/Not Resolved]
  - Injection site reaction [Not Recovered/Not Resolved]
  - Injection site erythema [Not Recovered/Not Resolved]
  - Nasopharyngitis [None]
  - Otorrhoea [Recovering/Resolving]
  - Ear discomfort [Recovering/Resolving]
  - Anaemia [Not Recovered/Not Resolved]
